FAERS Safety Report 9744745 (Version 1)
Quarter: 2013Q4

REPORT INFORMATION
  Report Type: Spontaneous
  Country: US (occurrence: US)
  Receive Date: 20131210
  Receipt Date: 20131210
  Transmission Date: 20140711
  Serious: No
  Sender: FDA-Public Use
  Company Number: US-SA-2013SA097433

PATIENT
  Age: 81 Year
  Sex: Male

DRUGS (1)
  1. RENVELA [Suspect]
     Indication: RENAL FAILURE CHRONIC
     Route: 065

REACTIONS (2)
  - Dysgeusia [Unknown]
  - Blister [Unknown]
